FAERS Safety Report 7358978-2 (Version None)
Quarter: 2011Q1

REPORT INFORMATION
  Report Type: 
  Country: None (occurrence: None)
  Receive Date: 20110317
  Receipt Date: 20100909
  Transmission Date: 20110831
  Serious: Yes (Hospitalization, Other)
  Sender: FDA-Public Use
  Company Number: US-BAYER-200939717NA

PATIENT
  Sex: Female
  Weight: 51.701 kg

DRUGS (8)
  1. YAZ [Suspect]
     Indication: ORAL CONTRACEPTION
     Dosage: UNK
     Dates: start: 20060701, end: 20070901
  2. YASMIN [Suspect]
     Indication: ORAL CONTRACEPTION
     Dosage: UNK
     Route: 048
     Dates: start: 20060601, end: 20070901
  3. YASMIN [Suspect]
     Indication: PREMENSTRUAL SYNDROME
  4. UNCODEABLE ^UNCLASSIFIABLE^ [Concomitant]
  5. NSAID'S [Concomitant]
  6. MULTIVITAMIN [Concomitant]
  7. YAZ [Suspect]
     Indication: PREMENSTRUAL SYNDROME
  8. IBUPROFEN [Concomitant]

REACTIONS (9)
  - NAUSEA [None]
  - VOMITING [None]
  - ABDOMINAL TENDERNESS [None]
  - ABDOMINAL PAIN UPPER [None]
  - ABDOMINAL PAIN [None]
  - CHOLECYSTITIS CHRONIC [None]
  - BILIARY DYSKINESIA [None]
  - POST PROCEDURAL BILE LEAK [None]
  - GASTROOESOPHAGEAL REFLUX DISEASE [None]
